FAERS Safety Report 22385697 (Version 2)
Quarter: 2023Q2

REPORT INFORMATION
  Report Type: Spontaneous
  Country: US (occurrence: US)
  Receive Date: 20230530
  Receipt Date: 20230626
  Transmission Date: 20230721
  Serious: Yes (Other)
  Sender: FDA-Public Use
  Company Number: US-BRISTOL-MYERS SQUIBB COMPANY-2023-073276

PATIENT
  Age: 78 Year
  Sex: Female

DRUGS (2)
  1. SPRYCEL [Suspect]
     Active Substance: DASATINIB
     Indication: Chronic myeloid leukaemia
  2. SPRYCEL [Suspect]
     Active Substance: DASATINIB
     Indication: Philadelphia chromosome positive
     Route: 048
     Dates: start: 202207, end: 202306

REACTIONS (7)
  - Hypertension [Unknown]
  - Renal impairment [Unknown]
  - Fatigue [Unknown]
  - Alopecia [Unknown]
  - Chills [Unknown]
  - Oedema peripheral [Unknown]
  - Pulmonary oedema [Unknown]
